FAERS Safety Report 24654504 (Version 1)
Quarter: 2024Q4

REPORT INFORMATION
  Report Type: Spontaneous
  Country: US (occurrence: None)
  Receive Date: 20241122
  Receipt Date: 20241122
  Transmission Date: 20250115
  Serious: Yes (Disabling, Other)
  Sender: Public
  Company Number: None

PATIENT
  Age: 55 Year
  Sex: Male
  Weight: 90 kg

DRUGS (5)
  1. OPZELURA [Suspect]
     Active Substance: RUXOLITINIB PHOSPHATE
     Indication: Eczema
     Dosage: 60 GRAMS TWICE A DAY TOPICAL
     Route: 061
     Dates: start: 20240510, end: 20240618
  2. AZITHROMYCIN ANHYDROUS [Suspect]
     Active Substance: AZITHROMYCIN ANHYDROUS
  3. PREDNISONE [Suspect]
     Active Substance: PREDNISONE
  4. AMOXICILLIN [Suspect]
     Active Substance: AMOXICILLIN
  5. ATORVASTATIN [Concomitant]
     Active Substance: ATORVASTATIN

REACTIONS (5)
  - Bronchitis [None]
  - Anosmia [None]
  - Sinusitis [None]
  - Headache [None]
  - Condition aggravated [None]

NARRATIVE: CASE EVENT DATE: 20240520
